APPROVED DRUG PRODUCT: CETIRIZINE HYDROCHLORIDE HIVES RELIEF
Active Ingredient: CETIRIZINE HYDROCHLORIDE
Strength: 10MG
Dosage Form/Route: CAPSULE;ORAL
Application: A209107 | Product #002
Applicant: AUROBINDO PHARMA LTD
Approved: Jul 20, 2018 | RLD: No | RS: No | Type: OTC